FAERS Safety Report 20974482 (Version 1)
Quarter: 2022Q2

REPORT INFORMATION
  Report Type: Spontaneous
  Country: CA (occurrence: CA)
  Receive Date: 20220617
  Receipt Date: 20220617
  Transmission Date: 20220721
  Serious: Yes (Hospitalization, Other)
  Sender: FDA-Public Use
  Company Number: None

PATIENT
  Age: 22 Year
  Sex: Male
  Weight: 60 kg

DRUGS (3)
  1. METHOTREXATE [Suspect]
     Active Substance: METHOTREXATE
     Indication: Product used for unknown indication
     Dosage: 1 EVERY 1 WEEKS
     Route: 065
  2. ERGOCALCIFEROL [Concomitant]
     Active Substance: ERGOCALCIFEROL
  3. FOLIC ACID [Concomitant]
     Active Substance: FOLIC ACID

REACTIONS (3)
  - Anal abscess [Unknown]
  - Anal fistula [Unknown]
  - Constipation [Unknown]
